FAERS Safety Report 7113384-0 (Version None)
Quarter: 2010Q4

REPORT INFORMATION
  Report Type: 
  Country: None (occurrence: None)
  Receive Date: 20101119
  Receipt Date: 20101110
  Transmission Date: 20110411
  Serious: Yes (Other)
  Sender: FDA-Public Use
  Company Number: PHHY2010FR76413

PATIENT
  Sex: Male

DRUGS (2)
  1. MYFORTIC [Suspect]
     Indication: RENAL TRANSPLANT
     Dosage: UNK
     Dates: start: 20070501
  2. PROGRAF [Concomitant]

REACTIONS (2)
  - PARALYSIS FLACCID [None]
  - VIITH NERVE PARALYSIS [None]
